FAERS Safety Report 23667450 (Version 1)
Quarter: 2024Q1

REPORT INFORMATION
  Report Type: Spontaneous
  Country: CN (occurrence: CN)
  Receive Date: 20240325
  Receipt Date: 20240325
  Transmission Date: 20240409
  Serious: Yes (Hospitalization, Other)
  Sender: FDA-Public Use
  Company Number: None

PATIENT
  Age: 53 Year
  Sex: Female
  Weight: 56 kg

DRUGS (5)
  1. CYCLOPHOSPHAMIDE [Suspect]
     Active Substance: CYCLOPHOSPHAMIDE
     Indication: Breast cancer female
     Dosage: 1 G, ONCE A DAY, 0.9% OF 100 ML OF SODIUM CHLORIDE, FIRST CYCLE OF POSTOPERATIVE CHEMOTHERAPY
     Route: 041
     Dates: start: 20240131, end: 20240131
  2. CYCLOPHOSPHAMIDE [Suspect]
     Active Substance: CYCLOPHOSPHAMIDE
     Dosage: 0.9 G, ONCE A DAY (START DATE: FEB-2024)
     Route: 041
  3. SODIUM CHLORIDE [Suspect]
     Active Substance: SODIUM CHLORIDE
     Indication: Medication dilution
     Dosage: 0.9% OF 100 ML, ONCE A DAY, USED TO DILUTE 1 G OF CYCLOPHOSPHAMIDE, DOSAGE FORM: INJECTION
     Route: 041
     Dates: start: 20240131, end: 20240131
  4. SODIUM CHLORIDE [Suspect]
     Active Substance: SODIUM CHLORIDE
     Dosage: 0.9% OF 250 ML, ONCE A DAY, USED TO DILUTE 140 MG OF EPIRUBICIN HYDROCHLORIDE
     Route: 041
     Dates: start: 20240131, end: 20240131
  5. EPIRUBICIN HYDROCHLORIDE [Suspect]
     Active Substance: EPIRUBICIN HYDROCHLORIDE
     Indication: Breast cancer female
     Dosage: 140 MG, ONCE A DAY, DILUTED WITH 0.9% OF 250 ML OF SODIUM CHLORIDE, FIRST CYCLE OF POSTOPERATIVE CHE
     Route: 041
     Dates: start: 20240131, end: 20240131

REACTIONS (3)
  - Myelosuppression [Recovering/Resolving]
  - White blood cell count decreased [Recovering/Resolving]
  - Granulocyte count decreased [Recovering/Resolving]

NARRATIVE: CASE EVENT DATE: 20240207
